FAERS Safety Report 24843572 (Version 3)
Quarter: 2025Q1

REPORT INFORMATION
  Report Type: Spontaneous
  Country: CN (occurrence: CN)
  Receive Date: 20250115
  Receipt Date: 20250312
  Transmission Date: 20250409
  Serious: Yes (Other)
  Sender: SANOFI AVENTIS
  Company Number: CN-SANOFI-02362957

PATIENT
  Age: 72 Year
  Sex: Male

DRUGS (2)
  1. IRBESARTAN [Suspect]
     Active Substance: IRBESARTAN
     Indication: Hypertension
     Dosage: 0.5 DF, QD (IN THE MORNING)
     Route: 048
     Dates: start: 2018
  2. IRBESARTAN [Suspect]
     Active Substance: IRBESARTAN
     Dosage: 0.5 DF, BID (EACH IN THE MORNING AND EVENING)
     Route: 048

REACTIONS (3)
  - Lung neoplasm malignant [Unknown]
  - Blood pressure increased [Unknown]
  - Off label use [Unknown]

NARRATIVE: CASE EVENT DATE: 20180101
